FAERS Safety Report 18108813 (Version 1)
Quarter: 2020Q3

REPORT INFORMATION
  Report Type: Spontaneous
  Country: CN (occurrence: CN)
  Receive Date: 20200804
  Receipt Date: 20200804
  Transmission Date: 20201103
  Serious: Yes (Hospitalization, Other)
  Sender: FDA-Public Use
  Company Number: CN-PFIZER INC-2020291317

PATIENT
  Age: 67 Year
  Sex: Male
  Weight: 60 kg

DRUGS (4)
  1. ZAVEDOS [Suspect]
     Active Substance: IDARUBICIN
     Indication: NEOPLASM
     Dosage: 10 MG, 1X/DAY
     Route: 041
     Dates: start: 20200320, end: 20200320
  2. ZAVEDOS [Suspect]
     Active Substance: IDARUBICIN
     Indication: ACUTE MYELOID LEUKAEMIA
  3. CYTARABINE. [Suspect]
     Active Substance: CYTARABINE
     Indication: NEOPLASM
     Dosage: 0.2 G, 1X/DAY
     Route: 041
     Dates: start: 20200220, end: 20200322
  4. CYTARABINE. [Suspect]
     Active Substance: CYTARABINE
     Indication: ACUTE MYELOID LEUKAEMIA

REACTIONS (3)
  - Pruritus allergic [Recovering/Resolving]
  - Drug eruption [Recovering/Resolving]
  - Drug hypersensitivity [Recovering/Resolving]

NARRATIVE: CASE EVENT DATE: 20200320
